FAERS Safety Report 9491554 (Version 1)
Quarter: 2013Q1

REPORT INFORMATION
  Report Type: Not Available
  Country: US (occurrence: US)
  Receive Date: 20121219
  Receipt Date: 20121219
  Transmission Date: 20140127
  Serious: No
  Sender: FDA-Public Use
  Company Number: US-LUNDBECK-DKLU1081698

PATIENT
  Sex: Female

DRUGS (4)
  1. ONFI [Suspect]
     Indication: CONVULSION
     Dates: end: 20120521
  2. VIMPAT [Concomitant]
     Indication: CONVULSION
  3. KEPPRA [Concomitant]
     Indication: CONVULSION
  4. LAMOTRIGINE [Concomitant]
     Indication: CONVULSION

REACTIONS (1)
  - Motor dysfunction [Unknown]
